FAERS Safety Report 9799899 (Version 1)
Quarter: 2014Q1

REPORT INFORMATION
  Report Type: Spontaneous
  Country: PL (occurrence: PL)
  Receive Date: 20140106
  Receipt Date: 20140106
  Transmission Date: 20141002
  Serious: Yes (Hospitalization)
  Sender: FDA-Public Use
  Company Number: PL-GLAXOSMITHKLINE-B0957512A

PATIENT
  Age: 16 Year
  Sex: Male
  Weight: 65 kg

DRUGS (1)
  1. ZOFRAN [Suspect]
     Indication: VOMITING
     Dosage: 2MG PER DAY
     Route: 042
     Dates: start: 20130618, end: 20130618

REACTIONS (1)
  - Hypoaesthesia [Recovered/Resolved]
